FAERS Safety Report 10087187 (Version 1)
Quarter: 2014Q2

REPORT INFORMATION
  Report Type: Spontaneous
  Country: RS (occurrence: RS)
  Receive Date: 20140418
  Receipt Date: 20140418
  Transmission Date: 20141212
  Serious: Yes (Hospitalization, Other)
  Sender: FDA-Public Use
  Company Number: RS-ABBVIE-14P-303-1225100-00

PATIENT
  Sex: Male
  Weight: 3.28 kg

DRUGS (1)
  1. VALPROIC ACID [Suspect]
     Indication: MATERNAL EXPOSURE TIMING UNSPECIFIED
     Route: 064

REACTIONS (6)
  - Angiosarcoma [Recovered/Resolved]
  - Pneumothorax [Unknown]
  - Hydronephrosis [Unknown]
  - Hypotonia neonatal [Unknown]
  - Joint contracture [Unknown]
  - Foetal exposure during pregnancy [Unknown]
